FAERS Safety Report 10090311 (Version 1)
Quarter: 2014Q2

REPORT INFORMATION
  Report Type: Spontaneous
  Country: CN (occurrence: CN)
  Receive Date: 20140421
  Receipt Date: 20140421
  Transmission Date: 20141212
  Serious: Yes (Hospitalization)
  Sender: FDA-Public Use
  Company Number: PHHY2014CN044358

PATIENT
  Age: 24 Year
  Sex: Female

DRUGS (4)
  1. ISONIAZID [Suspect]
     Indication: TUBERCULOSIS
     Dosage: 0.2 G
  2. ISONIAZID [Suspect]
     Dosage: 0.1 G
  3. AMIKACIN [Suspect]
     Indication: TUBERCULOSIS
     Dosage: 0.4 G
  4. MYCOBACTERIUM VACCAE [Concomitant]
     Dosage: 22.5 UG

REACTIONS (3)
  - Tuberculosis [Recovered/Resolved]
  - Cough [Recovered/Resolved]
  - Night sweats [Recovered/Resolved]
